FAERS Safety Report 9813592 (Version 1)
Quarter: 2014Q1

REPORT INFORMATION
  Report Type: Spontaneous
  Country: US (occurrence: US)
  Receive Date: 20140113
  Receipt Date: 20140113
  Transmission Date: 20141002
  Serious: No
  Sender: FDA-Public Use
  Company Number: US-PFIZER INC-2014009918

PATIENT
  Age: 60 Year
  Sex: Male

DRUGS (1)
  1. SUTENT [Suspect]
     Indication: RENAL CANCER
     Dosage: 50 MG, CYCLIC (50 MG DAILY X 7 DAYS ON, 7 DAYS OFF)
     Route: 048
     Dates: start: 20130201

REACTIONS (2)
  - Chapped lips [Unknown]
  - Diarrhoea [Unknown]
